FAERS Safety Report 23400089 (Version 2)
Quarter: 2024Q1

REPORT INFORMATION
  Report Type: Report from Study
  Country: JP (occurrence: JP)
  Receive Date: 20240114
  Receipt Date: 20240306
  Transmission Date: 20240410
  Serious: Yes (Death)
  Sender: FDA-Public Use
  Company Number: JP-TEVA-VS-3135313

PATIENT

DRUGS (4)
  1. CARBOPLATIN [Suspect]
     Active Substance: CARBOPLATIN
     Indication: Non-small cell lung cancer
     Dosage: AREA UNDER THE CONCENTRATION-TIME CURVE OF 5 OR 6 MG/ML/MIN; PLANNED TO RECEIVE 4 CYCLES EVERY 21...
     Route: 065
  2. PACLITAXEL [Suspect]
     Active Substance: PACLITAXEL
     Indication: Non-small cell lung cancer
     Dosage: PLANNED TO RECEIVE 4 CYCLES EVERY 21 DAYS
     Route: 065
  3. BEVACIZUMAB [Suspect]
     Active Substance: BEVACIZUMAB
     Indication: Non-small cell lung cancer
     Dosage: PLANNED TO RECEIVE 4 CYCLES EVERY 21 DAYS
     Route: 065
  4. ATEZOLIZUMAB [Suspect]
     Active Substance: ATEZOLIZUMAB
     Indication: Non-small cell lung cancer
     Dosage: PLANNED TO RECEIVE 4 CYCLES EVERY 21 DAYS
     Route: 065

REACTIONS (1)
  - Cerebral haemorrhage [Fatal]
